FAERS Safety Report 13008744 (Version 1)
Quarter: 2016Q4

REPORT INFORMATION
  Report Type: Spontaneous
  Country: KR (occurrence: KR)
  Receive Date: 20161208
  Receipt Date: 20161208
  Transmission Date: 20170207
  Serious: Yes (Other)
  Sender: FDA-Public Use
  Company Number: KR-ALLERGAN-1679373US

PATIENT
  Age: 62 Year
  Sex: Female

DRUGS (2)
  1. CLONAZEPAM. [Suspect]
     Active Substance: CLONAZEPAM
     Indication: ANXIETY DISORDER
     Dosage: 1 TAB
     Dates: start: 20150508
  2. ESCITALOPRAM OXALATE - BP [Suspect]
     Active Substance: ESCITALOPRAM OXALATE
     Indication: ANXIETY DISORDER
     Dosage: 1 TAB
     Dates: start: 20150429

REACTIONS (3)
  - Abdominal discomfort [Unknown]
  - Hyperhidrosis [Unknown]
  - Seizure [Unknown]

NARRATIVE: CASE EVENT DATE: 20150519
